FAERS Safety Report 5225709-1 (Version None)
Quarter: 2007Q1

REPORT INFORMATION
  Report Type: 
  Country: None (occurrence: None)
  Receive Date: 20070126
  Receipt Date: 20070117
  Transmission Date: 20070707
  Serious: Yes (Hospitalization, Other)
  Sender: FDA-Public Use
  Company Number: HQWYE996219JAN07

PATIENT
  Age: 34 Year
  Sex: Male

DRUGS (9)
  1. RAPAMUNE [Suspect]
     Indication: PROPHYLAXIS AGAINST TRANSPLANT REJECTION
     Dosage: 2 MG/3 MG ALTERNATING DAYS ORAL
     Route: 048
     Dates: start: 20040729
  2. AZATHIOPRINE [Concomitant]
  3. PREDNISONE TAB [Concomitant]
  4. OMEPRAZOLE [Concomitant]
  5. DOXYCYCLINE [Concomitant]
  6. ENOXAPARIN SODIUM [Concomitant]
  7. CLONIDINE [Concomitant]
  8. LIPITOR [Concomitant]
  9. AVAPRO [Concomitant]

REACTIONS (1)
  - THROMBOPHLEBITIS [None]
